FAERS Safety Report 9543948 (Version 1)
Quarter: 2013Q3

REPORT INFORMATION
  Report Type: Spontaneous
  Country: GB (occurrence: GB)
  Receive Date: 20130923
  Receipt Date: 20130923
  Transmission Date: 20140515
  Serious: Yes (Disabling)
  Sender: FDA-Public Use
  Company Number: GB-TEVA-433171ISR

PATIENT
  Age: 51 Year
  Sex: Male
  Weight: 134.5 kg

DRUGS (14)
  1. MIRTAZAPINE [Suspect]
  2. PROPRANOLOL [Concomitant]
     Dates: start: 20130507, end: 20130826
  3. ATORVASTATIN [Concomitant]
     Dates: start: 20130507, end: 20130826
  4. BUPRENORPHINE [Concomitant]
     Dates: start: 20130507, end: 20130826
  5. CITALOPRAM [Concomitant]
     Dates: start: 20130507, end: 20130801
  6. DOXAZOSIN [Concomitant]
     Dates: start: 20130507, end: 20130826
  7. FELODIPINE [Concomitant]
     Dates: start: 20130507, end: 20130826
  8. FERROUS SULPHATE [Concomitant]
     Dates: start: 20130507, end: 20130826
  9. INSULATARD [Concomitant]
     Dates: start: 20130507, end: 20130826
  10. METFORMIN [Concomitant]
     Dates: start: 20130507, end: 20130826
  11. ORLISTAT [Concomitant]
     Dates: start: 20130507, end: 20130826
  12. RAMIPRIL [Concomitant]
     Dates: start: 20130507, end: 20130826
  13. NOVORAPID [Concomitant]
     Dates: start: 20130528, end: 20130826
  14. TRAMADOL [Concomitant]
     Dates: start: 20130528, end: 20130808

REACTIONS (2)
  - Hallucinations, mixed [Recovered/Resolved]
  - Blood glucose increased [Unknown]
